FAERS Safety Report 13013480 (Version 1)
Quarter: 2016Q4

REPORT INFORMATION
  Report Type: Spontaneous
  Country: JP (occurrence: JP)
  Receive Date: 20161209
  Receipt Date: 20161209
  Transmission Date: 20170207
  Serious: Yes (Other)
  Sender: FDA-Public Use
  Company Number: JP-PFIZER INC-2016569336

PATIENT
  Age: 60 Year
  Sex: Female

DRUGS (1)
  1. AMLODIN [Suspect]
     Active Substance: AMLODIPINE BESYLATE
     Dosage: UNK

REACTIONS (3)
  - Blood pressure decreased [Unknown]
  - Drug interaction [Unknown]
  - Acute kidney injury [Unknown]
